FAERS Safety Report 19676235 (Version 2)
Quarter: 2022Q1

REPORT INFORMATION
  Report Type: Spontaneous
  Country: US (occurrence: US)
  Receive Date: 20210809
  Receipt Date: 20220303
  Transmission Date: 20220424
  Serious: No
  Sender: FDA-Public Use
  Company Number: US-SA-SAC20210806000783

PATIENT
  Age: 70 Year
  Sex: Female

DRUGS (2)
  1. DUPIXENT [Suspect]
     Active Substance: DUPILUMAB
     Indication: Dermatitis atopic
     Dosage: 600 MG, 1X
     Route: 058
     Dates: start: 202103, end: 202103
  2. DUPIXENT [Suspect]
     Active Substance: DUPILUMAB
     Dosage: 300 MG, QOW
     Route: 058

REACTIONS (10)
  - Ocular hyperaemia [Unknown]
  - Eye swelling [Unknown]
  - Erythema of eyelid [Unknown]
  - Swelling of eyelid [Unknown]
  - Eyelids pruritus [Unknown]
  - Headache [Unknown]
  - Eye inflammation [Unknown]
  - Eye pruritus [Unknown]
  - Blepharitis [Unknown]
  - Dry eye [Unknown]

NARRATIVE: CASE EVENT DATE: 20210101
